FAERS Safety Report 20916985 (Version 3)
Quarter: 2022Q3

REPORT INFORMATION
  Report Type: Report from Study
  Country: US (occurrence: US)
  Receive Date: 20220606
  Receipt Date: 20220830
  Transmission Date: 20221027
  Serious: No
  Sender: FDA-Public Use
  Company Number: US-AMGEN-USASP2022090464

PATIENT
  Age: 55 Year
  Sex: Female

DRUGS (1)
  1. REPATHA [Suspect]
     Active Substance: EVOLOCUMAB
     Indication: Product used for unknown indication
     Dosage: 140 MILLIGRAM, Q2WK
     Route: 065
     Dates: end: 20211201

REACTIONS (4)
  - Product prescribing issue [Unknown]
  - Chest pain [Unknown]
  - Muscle spasms [Unknown]
  - Blepharospasm [Unknown]

NARRATIVE: CASE EVENT DATE: 20211201
